FAERS Safety Report 4798316-2 (Version None)
Quarter: 2005Q4

REPORT INFORMATION
  Report Type: 
  Country: None (occurrence: None)
  Receive Date: 20051014
  Receipt Date: 20050906
  Transmission Date: 20060501
  Serious: Yes (Hospitalization)
  Sender: FDA-Public Use
  Company Number: HQWYE309208SEP05

PATIENT
  Sex: Male

DRUGS (13)
  1. ENBREL [Suspect]
     Indication: RHEUMATOID ARTHRITIS
     Route: 058
     Dates: start: 20050713, end: 20050905
  2. BUCILLAMINE [Suspect]
     Indication: RHEUMATOID ARTHRITIS
     Dosage: DOSE AND FREQUENCY NOT SPECIFIED
     Route: 048
     Dates: start: 20041130, end: 20050905
  3. ALENDRONATE SODIUM [Suspect]
     Indication: OSTEOPOROSIS
     Dosage: DOSE AND FREQUENCY NOT SPECIFIED
     Route: 048
     Dates: start: 20041101, end: 20050905
  4. ISONIAZID [Concomitant]
     Indication: ANTIBIOTIC PROPHYLAXIS
     Dosage: DOSE AND FREQUENCY NOT SPECIFIED
     Dates: start: 20041201, end: 20050901
  5. SULFAMETHOXAZOLE + TRIMETHOPRIM [Concomitant]
     Indication: DRUG USE FOR UNKNOWN INDICATION
     Dosage: DOSE AND FREQUENCY NOT SPECIFIED
     Dates: end: 20050901
  6. SUCRALFATE [Concomitant]
     Dosage: DOSE AND FREQUENCY NOT SPECIFIED
     Dates: end: 20050905
  7. PREDONINE [Concomitant]
     Dates: start: 20040223
  8. LANSOPRAZOLE [Concomitant]
     Dates: end: 20050101
  9. SODIUM ALGINATE [Concomitant]
     Dates: start: 20050201, end: 20050905
  10. ETODOLAC [Concomitant]
     Dates: start: 20050225, end: 20050908
  11. VOGLIBOSE [Concomitant]
     Dates: start: 20050324, end: 20050905
  12. RABEPRAZOLE SODIUM [Concomitant]
  13. FERROUS CITRATE [Concomitant]

REACTIONS (3)
  - ERYTHEMA MULTIFORME [None]
  - MALAISE [None]
  - PYREXIA [None]
